FAERS Safety Report 10046099 (Version 1)
Quarter: 2014Q1

REPORT INFORMATION
  Report Type: Spontaneous
  Country: US (occurrence: US)
  Receive Date: 20140331
  Receipt Date: 20140331
  Transmission Date: 20141002
  Serious: No
  Sender: FDA-Public Use
  Company Number: US-BIOGENIDEC-2012BI054438

PATIENT
  Sex: Female

DRUGS (1)
  1. AVONEX [Suspect]
     Indication: MULTIPLE SCLEROSIS
     Route: 030
     Dates: start: 20120310

REACTIONS (5)
  - Fall [Unknown]
  - Balance disorder [Unknown]
  - Chills [Recovered/Resolved]
  - Depression [Unknown]
  - Musculoskeletal stiffness [Unknown]
